FAERS Safety Report 9370373 (Version 3)
Quarter: 2013Q3

REPORT INFORMATION
  Report Type: Spontaneous
  Country: US (occurrence: US)
  Receive Date: 20130626
  Receipt Date: 20130807
  Transmission Date: 20140515
  Serious: Yes (Hospitalization)
  Sender: FDA-Public Use
  Company Number: US-UCBSA-089485

PATIENT
  Age: 29 Year
  Sex: Male

DRUGS (3)
  1. KEPPRA [Suspect]
     Indication: CONVULSION
     Dosage: UNKNOWN DOSE
     Dates: end: 201212
  2. KEPPRA [Suspect]
     Indication: CONVULSION
     Dates: start: 20130621
  3. KEPPRA IV [Suspect]
     Route: 042
     Dates: start: 2013

REACTIONS (6)
  - Convulsion [Recovered/Resolved]
  - Grand mal convulsion [Recovered/Resolved]
  - Excoriation [Recovered/Resolved]
  - Contusion [Recovered/Resolved]
  - Injury [Recovered/Resolved]
  - Hiccups [Recovered/Resolved]
